FAERS Safety Report 7958250-3 (Version None)
Quarter: 2011Q4

REPORT INFORMATION
  Report Type: 
  Country: None (occurrence: None)
  Receive Date: 20111205
  Receipt Date: 20111123
  Transmission Date: 20120403
  Serious: Yes (Other)
  Sender: FDA-Public Use
  Company Number: RO-ROCHE-1017436

PATIENT
  Sex: Female
  Weight: 42 kg

DRUGS (1)
  1. NUTROPIN AQ [Suspect]
     Indication: TURNER'S SYNDROME
     Dosage: 10MG/2ML
     Route: 058
     Dates: start: 20070101

REACTIONS (3)
  - BENIGN NEOPLASM OF SPINAL CORD [None]
  - INJURY [None]
  - FALL [None]
